FAERS Safety Report 5105562-7 (Version None)
Quarter: 2006Q3

REPORT INFORMATION
  Report Type: 
  Country: None (occurrence: None)
  Receive Date: 20060915
  Receipt Date: 20060906
  Transmission Date: 20061208
  Serious: Yes (Other)
  Sender: FDA-Public Use
  Company Number: CH-JNJFOC-20060901242

PATIENT
  Age: 59 Year
  Sex: Female

DRUGS (2)
  1. CAELYX [Suspect]
     Indication: BREAST CANCER
     Route: 042
  2. DEXAMETHASONE [Concomitant]

REACTIONS (2)
  - HEPATIC NECROSIS [None]
  - TRANSAMINASES INCREASED [None]
